FAERS Safety Report 8231533-8 (Version None)
Quarter: 2012Q1

REPORT INFORMATION
  Report Type: 
  Country: None (occurrence: None)
  Receive Date: 20120323
  Receipt Date: 20120316
  Transmission Date: 20120608
  Serious: Yes (Other)
  Sender: FDA-Public Use
  Company Number: PHHY2012NZ023292

PATIENT
  Sex: Female

DRUGS (4)
  1. LEVOTHYROXINE SODIUM [Concomitant]
  2. ZOLEDRONOC ACID [Suspect]
     Route: 042
     Dates: start: 20101101
  3. ZOLEDRONOC ACID [Suspect]
     Route: 042
     Dates: start: 20111101
  4. HYDROCORTISONE [Concomitant]

REACTIONS (2)
  - TOOTH FRACTURE [None]
  - TOOTH INFECTION [None]
